FAERS Safety Report 4887992-1 (Version None)
Quarter: 2006Q1

REPORT INFORMATION
  Report Type: 
  Country: None (occurrence: None)
  Receive Date: 20060123
  Receipt Date: 20050609
  Transmission Date: 20060701
  Serious: Yes (Hospitalization)
  Sender: FDA-Public Use
  Company Number: US-MERCK-0506USA01570

PATIENT
  Age: 48 Year
  Sex: Male

DRUGS (1)
  1. VIOXX [Suspect]
     Indication: ARTHRALGIA
     Route: 048
     Dates: start: 20010401, end: 20040101

REACTIONS (6)
  - ARTERIAL THROMBOSIS [None]
  - ARTHROPATHY [None]
  - DRUG INEFFECTIVE [None]
  - OSTEOARTHRITIS [None]
  - POLYTRAUMATISM [None]
  - VEIN DISORDER [None]
